FAERS Safety Report 20226968 (Version 1)
Quarter: 2021Q4

REPORT INFORMATION
  Report Type: Spontaneous
  Country: FR (occurrence: FR)
  Receive Date: 20211224
  Receipt Date: 20211224
  Transmission Date: 20220303
  Serious: Yes (Hospitalization)
  Sender: FDA-Public Use
  Company Number: None

PATIENT
  Age: 87 Year
  Sex: Female
  Weight: 53 kg

DRUGS (3)
  1. QUETIAPINE [Suspect]
     Active Substance: QUETIAPINE
     Dosage: 2 CP OF 200 MG IN SINGLE DOSE
     Route: 048
     Dates: start: 20211109, end: 20211109
  2. LORAZEPAM [Suspect]
     Active Substance: LORAZEPAM
     Dosage: 1.5 CP OF 1 MG IN A SINGLE DOSE
     Route: 048
     Dates: start: 20211109, end: 20211109
  3. CYAMEMAZINE [Suspect]
     Active Substance: CYAMEMAZINE
     Dosage: STRENGTH: 40 MG / ML, DOSAGE FORM: ORAL SOLUTION IN DROPS, 20 DROPS IN 1 SINGLE DOSE
     Route: 048
     Dates: start: 20211109, end: 20211109

REACTIONS (2)
  - Product administration error [Unknown]
  - Coma [Recovered/Resolved]

NARRATIVE: CASE EVENT DATE: 20211109
